FAERS Safety Report 5143601-8 (Version None)
Quarter: 2006Q4

REPORT INFORMATION
  Report Type: 
  Country: None (occurrence: None)
  Receive Date: 20061103
  Receipt Date: 20061026
  Transmission Date: 20070319
  Serious: Yes (Hospitalization)
  Sender: FDA-Public Use
  Company Number: FR-GLAXOSMITHKLINE-B0444091A

PATIENT
  Sex: Female

DRUGS (5)
  1. NIQUITIN CQ 4MG LOZENGE [Suspect]
     Route: 002
     Dates: start: 20060926, end: 20061025
  2. REMICADE [Concomitant]
  3. SPECIAFOLDINE [Concomitant]
  4. PRETERAX [Concomitant]
  5. METHOTREXATE [Concomitant]

REACTIONS (4)
  - DYSPNOEA [None]
  - PRURIGO [None]
  - RASH [None]
  - RASH GENERALISED [None]
